FAERS Safety Report 21139316 (Version 4)
Quarter: 2024Q1

REPORT INFORMATION
  Report Type: Other
  Country: US (occurrence: None)
  Receive Date: 20220727
  Receipt Date: 20240214
  Transmission Date: 20240410
  Serious: Yes (Hospitalization, Disabling)
  Sender: FDA-Public Use
  Company Number: US-ROCHE-3148661

PATIENT
  Age: 58 Year
  Sex: Female
  Weight: 102.15 kg

DRUGS (13)
  1. OCREVUS [Suspect]
     Active Substance: OCRELIZUMAB
     Indication: Relapsing multiple sclerosis
     Dosage: DATE OF TREATMENT:11/MAY/2021,14/MAR/2022
     Route: 042
     Dates: start: 202005
  2. LOSARTAN POTASSIUM [Concomitant]
     Active Substance: LOSARTAN POTASSIUM
     Dosage: 50 MG DAILY ORAL TAB
  3. METFORMIN [Concomitant]
     Active Substance: METFORMIN HYDROCHLORIDE
     Route: 048
  4. DIAZEPAM [Concomitant]
     Active Substance: DIAZEPAM
     Route: 048
  5. ELIQUIS [Concomitant]
     Active Substance: APIXABAN
  6. FAMOTIDINE [Concomitant]
     Active Substance: FAMOTIDINE
  7. BACLOFEN [Concomitant]
     Active Substance: BACLOFEN
  8. CRESTOR [Concomitant]
     Active Substance: ROSUVASTATIN CALCIUM
  9. OMEPRAZOLE [Concomitant]
     Active Substance: OMEPRAZOLE
  10. PROGESTERONE [Concomitant]
     Active Substance: PROGESTERONE
  11. ESTRADIOL [Concomitant]
     Active Substance: ESTRADIOL
     Dosage: 0.5 MG DAILY ORAL  TAB
  12. TRESIBA [Concomitant]
     Active Substance: INSULIN DEGLUDEC
     Dosage: SUBCUTANEOUS DAILY
  13. OZEMPIC [Concomitant]
     Active Substance: SEMAGLUTIDE
     Dosage: SUBCUTANEOUS EVERY WEEK

REACTIONS (9)
  - COVID-19 [Recovered/Resolved]
  - Thrombosis [Recovered/Resolved]
  - Fatigue [Not Recovered/Not Resolved]
  - Pain [Not Recovered/Not Resolved]
  - Pneumonia [Recovered/Resolved]
  - Sensory loss [Not Recovered/Not Resolved]
  - Blood oestrogen decreased [Unknown]
  - Gait disturbance [Not Recovered/Not Resolved]
  - Nephrolithiasis [Recovered/Resolved]

NARRATIVE: CASE EVENT DATE: 20211023
